FAERS Safety Report 6129896-2 (Version None)
Quarter: 2009Q1

REPORT INFORMATION
  Report Type: 
  Country: None (occurrence: None)
  Receive Date: 20090324
  Receipt Date: 20090312
  Transmission Date: 20090719
  Serious: Yes (Other)
  Sender: FDA-Public Use
  Company Number: CA-PFIZER INC-2009182959

PATIENT

DRUGS (1)
  1. LYRICA [Suspect]
     Indication: SHOULDER OPERATION
     Dosage: 75 MG, 2X/DAY
     Route: 048

REACTIONS (2)
  - PULMONARY EMBOLISM [None]
  - THROMBOSIS [None]
